FAERS Safety Report 11569295 (Version 1)
Quarter: 2015Q3

REPORT INFORMATION
  Report Type: Spontaneous
  Country: US (occurrence: None)
  Receive Date: 20150928
  Receipt Date: 20150928
  Transmission Date: 20151125
  Serious: No
  Sender: FDA-Public Use
  Company Number: None

PATIENT
  Age: 37 Year
  Sex: Female
  Weight: 77.11 kg

DRUGS (4)
  1. PARAGARD T 380A [Suspect]
     Active Substance: COPPER
     Dates: start: 20100329, end: 20150924
  2. LEVOTHYROXINE. [Concomitant]
     Active Substance: LEVOTHYROXINE
  3. FERROUS SULFATE [Concomitant]
     Active Substance: FERROUS SULFATE\FERROUS SULFATE, DRIED
  4. ONCE DAILY WOMEN^S VITAMIN [Concomitant]

REACTIONS (11)
  - Depression [None]
  - Mood altered [None]
  - Muscle spasms [None]
  - Toxicity to various agents [None]
  - Anxiety [None]
  - Irritability [None]
  - Apathy [None]
  - Loss of libido [None]
  - Constipation [None]
  - Suicidal ideation [None]
  - Panic attack [None]

NARRATIVE: CASE EVENT DATE: 20150924
